FAERS Safety Report 16166471 (Version 2)
Quarter: 2019Q2

REPORT INFORMATION
  Report Type: Report from Study
  Country: CO (occurrence: CO)
  Receive Date: 20190407
  Receipt Date: 20190510
  Transmission Date: 20190711
  Serious: Yes (Other)
  Sender: FDA-Public Use
  Company Number: CO-UCBSA-2019014288

PATIENT
  Age: 54 Year
  Sex: Female
  Weight: 75 kg

DRUGS (5)
  1. GEMFIBROZILO [Concomitant]
     Active Substance: GEMFIBROZIL
     Indication: PRODUCT USED FOR UNKNOWN INDICATION
     Dosage: UNK
  2. CALCITRIOL. [Concomitant]
     Active Substance: CALCITRIOL
     Indication: PRODUCT USED FOR UNKNOWN INDICATION
     Dosage: 0.25 MCI, ONCE DAILY (QD)
     Route: 048
  3. ACETAMINOPHEN AND CODEINE [Concomitant]
     Active Substance: ACETAMINOPHEN\CODEINE PHOSPHATE
     Indication: PRODUCT USED FOR UNKNOWN INDICATION
     Dosage: UNK, ONCE DAILY (QD)
     Route: 048
  4. CERTOLIZUMAB PEGOL [Suspect]
     Active Substance: CERTOLIZUMAB PEGOL
     Indication: RHEUMATOID ARTHRITIS
     Dosage: 400 MG, EV 4 WEEKS
     Route: 058
     Dates: start: 20160914
  5. ALOPURINOL [Concomitant]
     Active Substance: ALLOPURINOL
     Indication: PRODUCT USED FOR UNKNOWN INDICATION
     Dosage: 300 MG, ONCE DAILY (QD)

REACTIONS (3)
  - Tonsillitis [Recovering/Resolving]
  - Influenza [Recovering/Resolving]
  - Diarrhoea [Recovered/Resolved]

NARRATIVE: CASE EVENT DATE: 20190228
